FAERS Safety Report 11874487 (Version 1)
Quarter: 2015Q4

REPORT INFORMATION
  Report Type: Spontaneous
  Country: US (occurrence: US)
  Receive Date: 20151229
  Receipt Date: 20151229
  Transmission Date: 20160305
  Serious: No
  Sender: FDA-Public Use
  Company Number: PHEH2015US007356

PATIENT
  Sex: Female

DRUGS (7)
  1. TEGRETOL [Suspect]
     Active Substance: CARBAMAZEPINE
     Indication: PRODUCT USED FOR UNKNOWN INDICATION
     Dosage: 50 TO 1000 MG
     Route: 065
     Dates: start: 2004
  2. TEGRETOL [Suspect]
     Active Substance: CARBAMAZEPINE
     Dosage: 1 PILL (250 MG), QD
     Route: 065
     Dates: end: 200807
  3. RISPERIDONE. [Suspect]
     Active Substance: RISPERIDONE
     Indication: PRODUCT USED FOR UNKNOWN INDICATION
     Dosage: FOR 30 DAYS
     Route: 065
     Dates: start: 200601, end: 200602
  4. TOPAMAX [Suspect]
     Active Substance: TOPIRAMATE
     Indication: PRODUCT USED FOR UNKNOWN INDICATION
     Route: 065
  5. CARBAMAZEPINE. [Suspect]
     Active Substance: CARBAMAZEPINE
     Dosage: 1000 MG, QD
     Route: 065
  6. CARBAMAZEPINE. [Suspect]
     Active Substance: CARBAMAZEPINE
     Indication: PRODUCT USED FOR UNKNOWN INDICATION
     Dosage: 50 MG, QD
     Route: 065
  7. ALPRAZOLAM. [Suspect]
     Active Substance: ALPRAZOLAM
     Indication: PRODUCT USED FOR UNKNOWN INDICATION
     Dosage: COUPLE OF WEEKS
     Route: 065

REACTIONS (6)
  - Insomnia [Unknown]
  - Headache [Unknown]
  - Fatigue [Unknown]
  - Drug ineffective [Unknown]
  - Abdominal discomfort [Unknown]
  - Pain [Unknown]
